FAERS Safety Report 4283341-0 (Version None)
Quarter: 2004Q1

REPORT INFORMATION
  Report Type: 
  Country: None (occurrence: None)
  Receive Date: 20040129
  Receipt Date: 20040115
  Transmission Date: 20041129
  Serious: Yes (Hospitalization)
  Sender: FDA-Public Use
  Company Number: NO-JNJFOC-20030801538

PATIENT
  Sex: Male

DRUGS (2)
  1. REMICADE [Suspect]
     Indication: PYODERMA GANGRENOSUM
     Dosage: INTRAVENOUS
     Route: 042
     Dates: start: 20010424, end: 20010424
  2. REMICADE [Suspect]
     Indication: PYODERMA GANGRENOSUM
     Dosage: INTRAVENOUS
     Route: 042
     Dates: start: 20020902, end: 20020902

REACTIONS (3)
  - CARDIAC FAILURE [None]
  - ERYSIPELAS [None]
  - PYREXIA [None]
